FAERS Safety Report 6470337-3 (Version None)
Quarter: 2009Q4

REPORT INFORMATION
  Report Type: 
  Country: None (occurrence: None)
  Receive Date: 20091203
  Receipt Date: 20091125
  Transmission Date: 20100525
  Serious: Yes (Hospitalization)
  Sender: FDA-Public Use
  Company Number: US-B.I. PHARMACEUTICALS,INC./RIDGEFIELD-2009-BP-11416BP

PATIENT
  Age: 70 Year
  Sex: Male

DRUGS (5)
  1. FLOMAX [Suspect]
     Indication: BENIGN PROSTATIC HYPERPLASIA
     Dosage: 0.4 MG
     Route: 048
     Dates: start: 20090916
  2. FLOMAX [Suspect]
     Indication: NOCTURIA
  3. IBUPROFEN [Suspect]
     Indication: UNEVALUABLE EVENT
     Dosage: 800 MG
     Route: 048
     Dates: start: 20090801, end: 20090901
  4. DIOVAN [Concomitant]
     Indication: HYPERTENSION
  5. HYDROCHLOROTHIAZIDE [Concomitant]
     Indication: HYPERTENSION

REACTIONS (3)
  - DIVERTICULUM INTESTINAL HAEMORRHAGIC [None]
  - POLLAKIURIA [None]
  - RECTAL HAEMORRHAGE [None]
